FAERS Safety Report 5839346-9 (Version None)
Quarter: 2008Q3

REPORT INFORMATION
  Report Type: 
  Country: None (occurrence: None)
  Receive Date: 20080808
  Receipt Date: 20080730
  Transmission Date: 20090109
  Serious: Yes (Hospitalization)
  Sender: FDA-Public Use
  Company Number: JP-PFIZER INC-2008065392

PATIENT
  Age: 54 Year
  Sex: Female

DRUGS (3)
  1. MIGLITOL TABLET [Suspect]
     Indication: DIABETES MELLITUS
     Dosage: DAILY DOSE:25MG
     Route: 048
     Dates: start: 20080611, end: 20080615
  2. NOVORAPID [Concomitant]
     Indication: DIABETES MELLITUS
     Route: 058
  3. INSULIN DETEMIR [Concomitant]
     Indication: DIABETES MELLITUS
     Route: 058
     Dates: start: 20080603

REACTIONS (1)
  - HEPATIC FUNCTION ABNORMAL [None]
